FAERS Safety Report 4662364-3 (Version None)
Quarter: 2005Q2

REPORT INFORMATION
  Report Type: 
  Country: None (occurrence: None)
  Receive Date: 20050516
  Receipt Date: 20050504
  Transmission Date: 20051028
  Serious: Yes (Other)
  Sender: FDA-Public Use
  Company Number: US-JNJFOC-20050501446

PATIENT
  Age: 46 Year
  Sex: Male
  Weight: 74.39 kg

DRUGS (10)
  1. DURAGESIC-100 [Suspect]
     Route: 062
     Dates: start: 20040101
  2. DURAGESIC-100 [Suspect]
     Route: 062
     Dates: start: 20040101
  3. PLAVIX [Concomitant]
  4. ASPIRIN [Concomitant]
  5. ATENOLOL [Concomitant]
  6. LORCET-HD [Concomitant]
  7. LORCET-HD [Concomitant]
  8. NITROSTAT [Concomitant]
  9. ELAVIL [Concomitant]
  10. LISINOPRIL [Concomitant]

REACTIONS (5)
  - APPLICATION SITE DISCOLOURATION [None]
  - APPLICATION SITE VESICLES [None]
  - CARDIAC DISORDER [None]
  - MALAISE [None]
  - VOMITING [None]
